FAERS Safety Report 4900505-0 (Version None)
Quarter: 2006Q1

REPORT INFORMATION
  Report Type: 
  Country: None (occurrence: None)
  Receive Date: 20060203
  Receipt Date: 20060130
  Transmission Date: 20060701
  Serious: Yes (Hospitalization, Disabling)
  Sender: FDA-Public Use
  Company Number: US-MERCK-0602USA00032

PATIENT
  Age: 61 Year
  Sex: Female
  Weight: 117 kg

DRUGS (2)
  1. VIOXX [Suspect]
     Indication: ARTHRALGIA
     Route: 048
     Dates: start: 19990101, end: 20031001
  2. TYLENOL [Concomitant]
     Route: 065

REACTIONS (5)
  - ARTHRITIS [None]
  - CARPAL TUNNEL SYNDROME [None]
  - CHEST PAIN [None]
  - CORONARY ARTERY OCCLUSION [None]
  - RESPIRATORY DISORDER [None]
